FAERS Safety Report 5787135-6 (Version None)
Quarter: 2008Q2

REPORT INFORMATION
  Report Type: 
  Country: None (occurrence: None)
  Receive Date: 20080623
  Receipt Date: 20080623
  Transmission Date: 20081010
  Serious: Yes (Life-Threatening, Other)
  Sender: FDA-Public Use
  Company Number: None

PATIENT
  Age: 40 Year
  Sex: Female

DRUGS (12)
  1. LIDOCAINE VISCOUS [Suspect]
     Indication: LOCAL ANAESTHESIA
     Dosage: 20ML EVERY 3 HRS PRN PO
     Route: 048
     Dates: start: 20070826, end: 20070826
  2. PREGABALIN [Concomitant]
  3. ESOMEPRAZOLE MAGNESIUM [Concomitant]
  4. IBUPROFEN [Concomitant]
  5. FLUCONAZOLE [Concomitant]
  6. ENOXAPARIN SODIUM [Concomitant]
  7. PROMETHAZINE [Concomitant]
  8. HYDROMORPHONE HCL [Concomitant]
  9. ACETAMINOPHEN AND HYDROCODONE BITARTRATE [Concomitant]
  10. PREDNISONE 50MG TAB [Concomitant]
  11. HYDROXYCHLOROQUINE SULFATE [Concomitant]
  12. CLONAZEPAM [Concomitant]

REACTIONS (1)
  - ANGIOEDEMA [None]
